FAERS Safety Report 22353576 (Version 1)
Quarter: 2023Q2

REPORT INFORMATION
  Report Type: Spontaneous
  Country: US (occurrence: US)
  Receive Date: 20230523
  Receipt Date: 20230523
  Transmission Date: 20230721
  Serious: Yes (Hospitalization)
  Sender: FDA-Public Use
  Company Number: US-RECORDATI RARE DISEASE INC.-2023002830

PATIENT
  Age: 28 Year
  Sex: Female

DRUGS (2)
  1. PANHEMATIN [Suspect]
     Active Substance: HEMIN
     Indication: Porphyria acute
     Dosage: 218.4 MILLIGRAM
     Route: 042
     Dates: start: 2017
  2. PANHEMATIN [Suspect]
     Active Substance: HEMIN
     Dosage: 218.4 MILLIGRAM, QOW
     Route: 042
     Dates: start: 20230422

REACTIONS (1)
  - Hospitalisation [Unknown]

NARRATIVE: CASE EVENT DATE: 20230422
